FAERS Safety Report 6490800-9 (Version None)
Quarter: 2009Q4

REPORT INFORMATION
  Report Type: 
  Country: None (occurrence: None)
  Receive Date: 20091211
  Receipt Date: 20091207
  Transmission Date: 20100525
  Serious: Yes (Hospitalization)
  Sender: FDA-Public Use
  Company Number: US-BRISTOL-MYERS SQUIBB COMPANY-14885263

PATIENT
  Age: 63 Year
  Sex: Female
  Weight: 70 kg

DRUGS (3)
  1. TAXOL [Suspect]
     Indication: NON-SMALL CELL LUNG CANCER
     Dosage: 200 MG/M2 AND 45MG/M2;COURSE ASSOCIATED WITH:16NOV09
     Dates: start: 20090914
  2. CARBOPLATIN [Suspect]
     Indication: NON-SMALL CELL LUNG CANCER
     Dosage: AUC-2 WEEKLY FOR 6 DAYS AND DAY64 + 85;COURSE ASSOCIATED WITH:16NOV09
     Dates: start: 20090914
  3. RADIATION THERAPY [Suspect]
     Indication: NON-SMALL CELL LUNG CANCER
     Dosage: DF-GY.NUMBER OF FRACTION:30 NUMBER OF ELAPSED DAYS:39
     Dates: start: 20090914, end: 20091023

REACTIONS (1)
  - DYSPNOEA EXERTIONAL [None]
